FAERS Safety Report 16806175 (Version 5)
Quarter: 2020Q2

REPORT INFORMATION
  Report Type: Report from Study
  Country: CA (occurrence: CA)
  Receive Date: 20190913
  Receipt Date: 20200630
  Transmission Date: 20200713
  Serious: Yes (Other)
  Sender: FDA-Public Use
  Company Number: CA-BRISTOL-MYERS SQUIBB COMPANY-BMS-2019-086177

PATIENT
  Age: 65 Year
  Sex: Male

DRUGS (1)
  1. ABATACEPT [Suspect]
     Active Substance: ABATACEPT
     Indication: RHEUMATOID ARTHRITIS
     Dosage: 750 MILLIGRAM, Q4WK
     Route: 042
     Dates: start: 20100216, end: 20200303

REACTIONS (7)
  - Retinal detachment [Unknown]
  - Blood pressure systolic increased [Unknown]
  - Ocular hyperaemia [Unknown]
  - Back disorder [Unknown]
  - Eye pain [Unknown]
  - Blood pressure increased [Recovering/Resolving]
  - Poor venous access [Recovered/Resolved]

NARRATIVE: CASE EVENT DATE: 20190831
